FAERS Safety Report 14760548 (Version 2)
Quarter: 2018Q2

REPORT INFORMATION
  Report Type: Spontaneous
  Country: JP (occurrence: JP)
  Receive Date: 20180414
  Receipt Date: 20180522
  Transmission Date: 20180711
  Serious: Yes (Hospitalization, Other)
  Sender: FDA-Public Use
  Company Number: JP-AMGEN-JPNSP2018050740

PATIENT
  Sex: Female

DRUGS (4)
  1. FLUOROURACIL. [Concomitant]
     Active Substance: FLUOROURACIL
     Indication: COLON CANCER
     Dosage: UNK
     Route: 042
     Dates: start: 20171225
  2. PANITUMUMAB [Suspect]
     Active Substance: PANITUMUMAB
     Indication: COLON CANCER
     Dosage: UNK
     Route: 041
     Dates: start: 20171225
  3. CALCIUM LEVOFOLINATE [Concomitant]
     Active Substance: LEVOLEUCOVORIN CALCIUM
     Indication: COLON CANCER
     Dosage: UNK
     Route: 041
     Dates: start: 20171225
  4. IRINOTECAN HYDROCHLORIDE. [Concomitant]
     Active Substance: IRINOTECAN HYDROCHLORIDE
     Indication: COLON CANCER
     Dosage: UNK
     Route: 041
     Dates: start: 20171225

REACTIONS (2)
  - Acne [Recovering/Resolving]
  - Acute kidney injury [Recovering/Resolving]

NARRATIVE: CASE EVENT DATE: 20180310
